FAERS Safety Report 4762767-2 (Version None)
Quarter: 2005Q3

REPORT INFORMATION
  Report Type: 
  Country: None (occurrence: None)
  Receive Date: 20050907
  Receipt Date: 20050831
  Transmission Date: 20060218
  Serious: Yes (Other)
  Sender: FDA-Public Use
  Company Number: AU-MERCK-0508AUS00162

PATIENT
  Age: 67 Year
  Sex: Male

DRUGS (5)
  1. VIOXX [Suspect]
     Indication: OSTEOARTHRITIS
     Route: 048
     Dates: start: 20010701, end: 20041001
  2. VASOTEC RPD [Concomitant]
     Route: 065
  3. IRBESARTAN [Concomitant]
     Route: 065
  4. ATENOLOL [Concomitant]
     Route: 065
  5. ISOSORBIDE MONONITRATE [Concomitant]
     Route: 065

REACTIONS (1)
  - RETINAL ARTERY OCCLUSION [None]
